FAERS Safety Report 6953229-2 (Version None)
Quarter: 2010Q3

REPORT INFORMATION
  Report Type: 
  Country: None (occurrence: None)
  Receive Date: 20100829
  Receipt Date: 20100601
  Transmission Date: 20110219
  Serious: No
  Sender: FDA-Public Use
  Company Number: US-ABBOTT-10P-163-0649234-00

PATIENT
  Sex: Male
  Weight: 115.77 kg

DRUGS (13)
  1. NIASPAN [Suspect]
     Indication: PRODUCT USED FOR UNKNOWN INDICATION
  2. NIASPAN [Suspect]
  3. NIASPAN [Suspect]
  4. CELEXA [Concomitant]
     Indication: DEPRESSION
  5. BUSPAR [Concomitant]
     Indication: ANXIETY
     Dosage: BID
  6. COREG CR [Concomitant]
     Indication: CARDIAC FAILURE CONGESTIVE
  7. LOVAZA [Concomitant]
     Indication: PRODUCT USED FOR UNKNOWN INDICATION
     Dosage: BID
  8. FENOFIBRATE [Concomitant]
     Indication: PRODUCT USED FOR UNKNOWN INDICATION
  9. ASPIRIN [Concomitant]
     Indication: PRODUCT USED FOR UNKNOWN INDICATION
     Dosage: BID
  10. NORVASC [Concomitant]
     Indication: PRODUCT USED FOR UNKNOWN INDICATION
  11. PRAVASTATIN [Concomitant]
     Indication: BLOOD CHOLESTEROL
     Dosage: CHOLESTEROL
  12. FUROSEMIDE [Concomitant]
     Indication: PRODUCT USED FOR UNKNOWN INDICATION
     Dosage: 20 MG IN PM 40 MG IN AM
  13. PEPCID AC [Concomitant]
     Indication: GASTROOESOPHAGEAL REFLUX DISEASE
     Dosage: BID

REACTIONS (4)
  - FEELING HOT [None]
  - FLUSHING [None]
  - POOR QUALITY SLEEP [None]
  - PRURITUS [None]
